FAERS Safety Report 23218318 (Version 1)
Quarter: 2023Q4

REPORT INFORMATION
  Report Type: Other
  Country: None (occurrence: IN)
  Receive Date: 20231122
  Receipt Date: 20231122
  Transmission Date: 20240110
  Serious: Yes (Hospitalization)
  Sender: FDA-Public Use
  Company Number: IN-B.Braun Medical Inc.-2148601

PATIENT
  Age: 63 Year
  Sex: Female

DRUGS (9)
  1. MEROPENEM\SODIUM CHLORIDE [Suspect]
     Active Substance: MEROPENEM\SODIUM CHLORIDE
     Indication: COVID-19
  2. REMDESIVIR [Suspect]
     Active Substance: REMDESIVIR
  3. ENOXAPARIN [Suspect]
     Active Substance: ENOXAPARIN
  4. DOXYCYCLINE [Suspect]
     Active Substance: DOXYCYCLINE
  5. AMIKACIN [Suspect]
     Active Substance: AMIKACIN
  6. BUDESONIDE [Suspect]
     Active Substance: BUDESONIDE
  7. FORMOTEROL [Suspect]
     Active Substance: FORMOTEROL
  8. INSULIN NOS [Concomitant]
     Active Substance: INSULIN NOS
  9. Moist oxygen [Concomitant]

REACTIONS (2)
  - Blindness [None]
  - Off label use [None]
